FAERS Safety Report 25390247 (Version 1)
Quarter: 2025Q2

REPORT INFORMATION
  Report Type: Spontaneous
  Country: US (occurrence: None)
  Receive Date: 20250602
  Receipt Date: 20250602
  Transmission Date: 20250716
  Serious: No
  Sender: FDA-CTU
  Company Number: None

PATIENT
  Age: 57 Year
  Sex: Male
  Weight: 103 kg

DRUGS (4)
  1. SEMAGLUTIDE [Suspect]
     Active Substance: SEMAGLUTIDE
     Dosage: OTHER FREQUENCY : QWEEK;?
     Route: 058
  2. FLUOXETINE [Suspect]
     Active Substance: FLUOXETINE HYDROCHLORIDE
  3. RISPERIDONE [Suspect]
     Active Substance: RISPERIDONE
  4. HYDROXYZINE [Suspect]
     Active Substance: HYDROXYZINE HYDROCHLORIDE

REACTIONS (8)
  - Suicidal ideation [None]
  - Nausea [None]
  - Vomiting [None]
  - Depression [None]
  - Anxiety [None]
  - Irritability [None]
  - Condition aggravated [None]
  - Therapy cessation [None]

NARRATIVE: CASE EVENT DATE: 20250522
